FAERS Safety Report 8885197 (Version 9)
Quarter: 2013Q3

REPORT INFORMATION
  Report Type: Spontaneous
  Country: US (occurrence: US)
  Receive Date: 20121102
  Receipt Date: 20130924
  Transmission Date: 20140515
  Serious: Yes (Death, Hospitalization, Other)
  Sender: FDA-Public Use
  Company Number: US-PFIZER INC-2012272135

PATIENT
  Age: 81 Year
  Sex: Female
  Weight: 66.67 kg

DRUGS (12)
  1. SUTENT [Suspect]
     Indication: RENAL CELL CARCINOMA
     Dosage: 37.5 MG, 1X/DAY (3  12.5 MG CAPSULES DAILY, 14 DAYS ON + 7 DAYS OFF)
     Route: 048
     Dates: start: 20120831, end: 20130716
  2. COUMADINE [Suspect]
     Indication: THROMBOSIS
     Dosage: UNK
  3. PLAVIX [Suspect]
     Dosage: 75 MG, 1X/DAY
     Route: 048
     Dates: end: 20121031
  4. METOPROLOL [Suspect]
     Dosage: UNK, TWICE A DAY
  5. ENALAPRIL [Suspect]
     Dosage: UNK
  6. DIGOXIN [Concomitant]
     Dosage: 125 UG, 1X/DAY
     Route: 048
  7. ZETIA [Concomitant]
     Dosage: 10 MG, 1X/DAY
     Route: 048
  8. ATENOLOL [Concomitant]
     Dosage: UNK
  9. ALISKIREN [Concomitant]
     Dosage: UNK, PM
  10. ASPIRIN [Concomitant]
     Dosage: 81 MG, 1X/DAY
     Route: 048
  11. TEKTURNA [Concomitant]
     Dosage: UNK
  12. ALEVE [Concomitant]
     Dosage: UNK

REACTIONS (18)
  - Death [Fatal]
  - Pulmonary embolism [Unknown]
  - Epistaxis [Recovered/Resolved]
  - Dehydration [Recovered/Resolved]
  - Urinary tract infection [Recovered/Resolved]
  - Pericardial effusion [Recovered/Resolved]
  - Abdominal pain upper [Unknown]
  - Alopecia [Unknown]
  - Decreased appetite [Unknown]
  - International normalised ratio abnormal [Unknown]
  - Oesophageal pain [Unknown]
  - Dyspnoea [Unknown]
  - Blood creatinine increased [Unknown]
  - Disease progression [Unknown]
  - Renal cell carcinoma [Unknown]
  - Blood pressure decreased [Unknown]
  - Asthenia [Unknown]
  - Somnolence [Unknown]
